FAERS Safety Report 14893688 (Version 3)
Quarter: 2018Q2

REPORT INFORMATION
  Report Type: Report from Study
  Country: FR (occurrence: FR)
  Receive Date: 20180514
  Receipt Date: 20180619
  Transmission Date: 20180711
  Serious: Yes (Death, Life-Threatening, Hospitalization, Other)
  Sender: FDA-Public Use
  Company Number: FR-JAZZ-2018-FR-007468

PATIENT

DRUGS (1)
  1. DEFITELIO [Suspect]
     Active Substance: DEFIBROTIDE SODIUM
     Indication: VENOOCCLUSIVE LIVER DISEASE
     Dosage: 27 MG/KG, QD
     Route: 042
     Dates: start: 20140928

REACTIONS (14)
  - Staphylococcal bacteraemia [Recovered/Resolved]
  - Engraftment syndrome [Unknown]
  - Agitation [Unknown]
  - Histiocytosis haematophagic [Fatal]
  - Uraemic encephalopathy [Recovered/Resolved]
  - Septic shock [Fatal]
  - Multiple organ dysfunction syndrome [Fatal]
  - Pleural effusion [Unknown]
  - Graft versus host disease in skin [Unknown]
  - Graft versus host disease in liver [Unknown]
  - Graft versus host disease in gastrointestinal tract [Unknown]
  - Meningioma [Unknown]
  - Altered state of consciousness [Unknown]
  - Confusional state [Unknown]

NARRATIVE: CASE EVENT DATE: 2014
